FAERS Safety Report 8995589 (Version 1)
Quarter: 2013Q1

REPORT INFORMATION
  Report Type: Spontaneous
  Country: US (occurrence: US)
  Receive Date: 20130103
  Receipt Date: 20130103
  Transmission Date: 20140127
  Serious: No
  Sender: FDA-Public Use
  Company Number: US-ABBOTT-12P-163-1018963-00

PATIENT
  Sex: Female

DRUGS (5)
  1. SYNTHROID [Suspect]
     Indication: HYPOTHYROIDISM
  2. VIIBRYD [Suspect]
     Indication: MAJOR DEPRESSION
     Route: 048
     Dates: start: 20121002, end: 20121008
  3. VIIBRYD [Suspect]
     Indication: MAJOR DEPRESSION
     Route: 048
     Dates: start: 20121016
  4. VIIBRYD [Suspect]
     Indication: MAJOR DEPRESSION
     Route: 048
     Dates: start: 201211
  5. PHENTERMINE [Concomitant]
     Indication: WEIGHT DECREASED

REACTIONS (7)
  - Hallucination, auditory [Unknown]
  - Anxiety [Unknown]
  - Photopsia [Unknown]
  - Paraesthesia [Unknown]
  - Abnormal dreams [Unknown]
  - Drug interaction [Unknown]
  - Hallucination, visual [Unknown]
